FAERS Safety Report 7155936-8 (Version None)
Quarter: 2010Q4

REPORT INFORMATION
  Report Type: 
  Country: None (occurrence: None)
  Receive Date: 20101123
  Receipt Date: 20100819
  Transmission Date: 20110411
  Serious: Yes (Other)
  Sender: FDA-Public Use
  Company Number: 017811

PATIENT
  Sex: Female
  Weight: 52.1637 kg

DRUGS (2)
  1. CIMZIA [Suspect]
     Indication: CROHN'S DISEASE
     Dosage: (400 MG  1X/4 WEEKS SUBCUTANEOUS)
     Route: 058
     Dates: start: 20100207
  2. PREDNISONE [Concomitant]

REACTIONS (4)
  - DYSPHAGIA [None]
  - HAEMATOCRIT DECREASED [None]
  - NAUSEA [None]
  - OESOPHAGEAL CANDIDIASIS [None]
